FAERS Safety Report 16716054 (Version 4)
Quarter: 2019Q3

REPORT INFORMATION
  Report Type: Spontaneous
  Country: FR (occurrence: FR)
  Receive Date: 20190819
  Receipt Date: 20190930
  Transmission Date: 20191005
  Serious: Yes (Life-Threatening, Hospitalization, Other)
  Sender: FDA-Public Use
  Company Number: FR-MYLANLABS-2019M1076565

PATIENT
  Age: 66 Year
  Sex: Female

DRUGS (25)
  1. LORMETAZEPAM [Concomitant]
     Active Substance: LORMETAZEPAM
     Dosage: UNK
     Route: 048
  2. ACETYLSALICYLATE LYSINE [Concomitant]
     Active Substance: ASPIRIN DL-LYSINE
     Indication: PRODUCT USED FOR UNKNOWN INDICATION
     Dosage: 160 MG,QD (1 BAG IN AFTERNOON)
     Route: 048
     Dates: end: 20180211
  3. CEFOTAXIME [Concomitant]
     Active Substance: CEFOTAXIME SODIUM
     Indication: ESCHERICHIA URINARY TRACT INFECTION
     Dosage: 16 GRAM, QD 9A DOSE OF 16G/DAY IV)
     Route: 042
     Dates: start: 20180211, end: 20180211
  4. SOTALOL. [Suspect]
     Active Substance: SOTALOL
     Dosage: 160 MILLIGRAM, QD
     Route: 048
     Dates: start: 20180211
  5. SOTALEX [Interacting]
     Active Substance: SOTALOL
     Indication: PRODUCT USED FOR UNKNOWN INDICATION
     Dosage: 160 MG,QD (80 MG, BID)
     Route: 048
     Dates: start: 20180211
  6. LORMETAZEPAM [Concomitant]
     Active Substance: LORMETAZEPAM
     Indication: PRODUCT USED FOR UNKNOWN INDICATION
     Dosage: 2 MG,QD (1 TAB WHEN GOING TO BED
     Route: 048
     Dates: start: 20180211, end: 20180211
  7. WARFARIN [Concomitant]
     Active Substance: WARFARIN
     Indication: PRODUCT USED FOR UNKNOWN INDICATION
     Dosage: 2 MG,QD (1 TABLET IN EVENING)
     Route: 048
     Dates: end: 20180211
  8. PARACETAMOL [Concomitant]
     Active Substance: ACETAMINOPHEN
     Indication: PRODUCT USED FOR UNKNOWN INDICATION
     Dosage: 1500 MG,QD (1 TAB IN MOR, AFTER,EVEN)
     Route: 048
     Dates: end: 20180211
  9. SOTALEX [Interacting]
     Active Substance: SOTALOL
     Dosage: UNK
     Route: 065
     Dates: start: 20180215, end: 20180223
  10. ALPRAZOLAM. [Concomitant]
     Active Substance: ALPRAZOLAM
     Indication: PRODUCT USED FOR UNKNOWN INDICATION
     Dosage: 0.5 MG,QD (1 TAB IN EVENING)
     Route: 048
     Dates: start: 20180211, end: 20180211
  11. BACLOFEN. [Concomitant]
     Active Substance: BACLOFEN
     Dosage: UNK
     Route: 048
  12. SOTALOL. [Suspect]
     Active Substance: SOTALOL
     Indication: TORSADE DE POINTES
     Dosage: UNK
     Route: 065
     Dates: start: 20180215, end: 20180223
  13. AMIODARONE [Interacting]
     Active Substance: AMIODARONE
     Indication: TORSADE DE POINTES
     Dosage: 200 MILLIGRAM, QD
     Route: 048
     Dates: start: 20180215
  14. SERTRALINE [Suspect]
     Active Substance: SERTRALINE HYDROCHLORIDE
     Indication: TORSADE DE POINTES
     Dosage: 25 MILLIGRAM, QD (1 GELULE IN THE MORNING)
     Route: 048
     Dates: start: 20180211
  15. AMIODARONE [Interacting]
     Active Substance: AMIODARONE
     Indication: ATRIAL FIBRILLATION
  16. ZOLOFT [Interacting]
     Active Substance: SERTRALINE HYDROCHLORIDE
     Indication: PRODUCT USED FOR UNKNOWN INDICATION
     Dosage: 25 MG,QD (1CAP IN MORNING)
     Route: 048
     Dates: start: 20180211
  17. BACLOFEN. [Concomitant]
     Active Substance: BACLOFEN
     Indication: PRODUCT USED FOR UNKNOWN INDICATION
     Dosage: 30 MG,QD (1 TAB IN MOR,AFTER,EVE)
     Route: 048
     Dates: start: 20180211, end: 20180211
  18. ACETYLSALICYLATE LYSINE [Concomitant]
     Active Substance: ASPIRIN DL-LYSINE
     Indication: PRODUCT USED FOR UNKNOWN INDICATION
     Dosage: 160 MILLIGRAM, QD
     Route: 048
     Dates: start: 20180211
  19. AMIODARONE [Interacting]
     Active Substance: AMIODARONE
     Indication: ATRIAL FIBRILLATION
     Dosage: 1200 MG,QD/CONTINUOUSLY FOR 1 DAY
     Route: 042
     Dates: start: 20180214, end: 20180214
  20. ZOLOFT [Interacting]
     Active Substance: SERTRALINE HYDROCHLORIDE
     Dosage: UNK
     Route: 065
     Dates: start: 20180216, end: 20180223
  21. DESLORATADINE. [Concomitant]
     Active Substance: DESLORATADINE
     Indication: PRODUCT USED FOR UNKNOWN INDICATION
     Dosage: 5 MG,QD(1 TAB IN MORNING)
     Route: 048
     Dates: start: 20180211, end: 20180211
  22. ALPRAZOLAM. [Concomitant]
     Active Substance: ALPRAZOLAM
     Dosage: 0.5 MILLIGRAM, QD
     Route: 048
  23. SERTRALINE [Suspect]
     Active Substance: SERTRALINE HYDROCHLORIDE
     Dosage: UNK
     Route: 065
     Dates: start: 20180216, end: 20180223
  24. WARFARIN [Concomitant]
     Active Substance: WARFARIN
     Dosage: 2 MG,QD (1 TABLET IN EVENING)
     Route: 048
     Dates: start: 20180211
  25. PARACETAMOL [Concomitant]
     Active Substance: ACETAMINOPHEN
     Dosage: 1500MG, QD  (500 MILLIGRAM, TID)
     Route: 048
     Dates: start: 20180211

REACTIONS (23)
  - Cardiac arrest [Recovered/Resolved]
  - Altered state of consciousness [Recovered/Resolved]
  - Fall [Recovered/Resolved]
  - Electrocardiogram T wave abnormal [Recovered/Resolved]
  - Contraindicated product administered [Unknown]
  - Influenza [Recovered/Resolved]
  - Livedo reticularis [Recovered/Resolved]
  - International normalised ratio increased [Recovered/Resolved]
  - Somnolence [Recovered/Resolved]
  - Coronary artery stenosis [Recovered/Resolved]
  - Atrial fibrillation [Recovered/Resolved]
  - Medication error [Recovered/Resolved]
  - Electrocardiogram QT prolonged [Recovered/Resolved]
  - Blood pressure immeasurable [Recovered/Resolved]
  - Acute coronary syndrome [Recovered/Resolved]
  - Drug interaction [Recovered/Resolved]
  - Hypoxia [Recovered/Resolved]
  - Femoral neck fracture [Recovered/Resolved]
  - Torsade de pointes [Recovered/Resolved]
  - Electrocardiogram ST segment elevation [Recovered/Resolved]
  - Septic shock [Recovered/Resolved]
  - Livedo reticularis [Recovered/Resolved]
  - Escherichia urinary tract infection [Recovered/Resolved]

NARRATIVE: CASE EVENT DATE: 20180210
